FAERS Safety Report 5198130-2 (Version None)
Quarter: 2006Q4

REPORT INFORMATION
  Report Type: 
  Country: None (occurrence: None)
  Receive Date: 20061228
  Receipt Date: 20061228
  Transmission Date: 20070319
  Serious: Yes (Other)
  Sender: FDA-Public Use
  Company Number: None

PATIENT
  Sex: Female
  Weight: 79.3795 kg

DRUGS (2)
  1. CONCERTA [Suspect]
     Indication: DEPRESSION
     Dosage: 18 MG Q AM PO
     Route: 048
     Dates: start: 20061205
  2. CONCERTA [Suspect]
     Indication: DRUG RESISTANCE
     Dosage: 18 MG Q AM PO
     Route: 048
     Dates: start: 20061205

REACTIONS (5)
  - DYSPNOEA [None]
  - ERYTHEMA [None]
  - FLUSHING [None]
  - HEADACHE [None]
  - SKIN WARM [None]
